FAERS Safety Report 5793603-3 (Version None)
Quarter: 2008Q2

REPORT INFORMATION
  Report Type: 
  Country: None (occurrence: None)
  Receive Date: 20080627
  Receipt Date: 20080624
  Transmission Date: 20081010
  Serious: Yes (Death, Life-Threatening, Other)
  Sender: FDA-Public Use
  Company Number: PHHY2008JP02300

PATIENT
  Age: 39 Year
  Sex: Male

DRUGS (6)
  1. CYCLOSPORINE [Suspect]
     Indication: CORD BLOOD TRANSPLANT THERAPY
     Dates: start: 19991009
  2. METHYLPREDNISOLONE [Concomitant]
     Indication: CORD BLOOD TRANSPLANT THERAPY
  3. ANTITHYMOCYTE IMMUNOGLOBULIN [Concomitant]
     Dosage: 2.5 MG/KG/DAY
  4. NEUPOGEN [Concomitant]
  5. EPOGEN [Concomitant]
  6. THROMBOPOIETIN [Concomitant]

REACTIONS (8)
  - ACUTE RESPIRATORY DISTRESS SYNDROME [None]
  - GASTROINTESTINAL HAEMORRHAGE [None]
  - IMMUNOGLOBULINS ABNORMAL [None]
  - LYMPHOCYTE COUNT ABNORMAL [None]
  - PNEUMONIA ASPIRATION [None]
  - RADIATION SKIN INJURY [None]
  - SKIN GRAFT [None]
  - STAPHYLOCOCCAL INFECTION [None]
